FAERS Safety Report 13929749 (Version 2)
Quarter: 2017Q3

REPORT INFORMATION
  Report Type: Report from Study
  Country: US (occurrence: US)
  Receive Date: 20170901
  Receipt Date: 20170927
  Transmission Date: 20171127
  Serious: Yes (Hospitalization)
  Sender: FDA-Public Use
  Company Number: US-SEATTLE GENETICS-2017SGN02021

PATIENT
  Age: 40 Year
  Sex: Female
  Weight: 75.7 kg

DRUGS (10)
  1. MIRALAX [Concomitant]
     Active Substance: POLYETHYLENE GLYCOL 3350
     Dosage: 17 G, PRN
     Dates: start: 20170802
  2. ONDANSETRON [Concomitant]
     Active Substance: ONDANSETRON
     Dosage: UNK, PRN
     Dates: start: 20170802
  3. SENNA                              /00142201/ [Concomitant]
     Active Substance: SENNA LEAF
     Dosage: 17.2 MG, QD
     Dates: start: 20170802
  4. BRENTUXIMAB VEDOTIN [Suspect]
     Active Substance: BRENTUXIMAB VEDOTIN
     Indication: HODGKIN^S DISEASE
     Dosage: 1.5 UNK, UNK
     Route: 042
     Dates: start: 20170801, end: 20170822
  5. IFOSFAMIDE. [Suspect]
     Active Substance: IFOSFAMIDE
     Indication: HODGKIN^S DISEASE
     Dosage: UNK
     Route: 042
     Dates: start: 20170801, end: 20170822
  6. ETOPOSIDE. [Suspect]
     Active Substance: ETOPOSIDE
     Indication: HODGKIN^S DISEASE
     Dosage: UNK
     Route: 042
     Dates: start: 20170801, end: 20170822
  7. PROCHLORPERAZINE. [Concomitant]
     Active Substance: PROCHLORPERAZINE
     Dosage: 10 MG, PRN
     Dates: start: 20170804
  8. CARBOPLATIN. [Suspect]
     Active Substance: CARBOPLATIN
     Indication: HODGKIN^S DISEASE
     Dosage: UNK
     Route: 042
     Dates: start: 20170801, end: 20170822
  9. MIRENA [Concomitant]
     Active Substance: LEVONORGESTREL
     Dosage: UNK
     Dates: start: 2012
  10. ACYCLOVIR                          /00587301/ [Concomitant]
     Active Substance: ACYCLOVIR
     Dosage: 800 MG, QD
     Dates: start: 20170802

REACTIONS (4)
  - Blood lactic acid increased [Unknown]
  - Sepsis [Unknown]
  - Erythema [Unknown]
  - Pyrexia [Unknown]

NARRATIVE: CASE EVENT DATE: 20170824
